FAERS Safety Report 8487712-8 (Version None)
Quarter: 2012Q2

REPORT INFORMATION
  Report Type: 
  Country: None (occurrence: None)
  Receive Date: 20120402
  Receipt Date: 20100324
  Transmission Date: 20120825
  Serious: Yes (Other)
  Sender: FDA-Public Use
  Company Number: PHHY2010US17014

PATIENT

DRUGS (3)
  1. ASPIRIN [Concomitant]
  2. EXFORGE [Suspect]
     Indication: RENAL FAILURE CHRONIC
     Dosage: 320/10MG, QD, ORAL
     Route: 048
     Dates: start: 20091201, end: 20100301
  3. EXFORGE [Suspect]
     Indication: HYPERTENSION
     Dosage: 320/10MG, QD, ORAL
     Route: 048
     Dates: start: 20091201, end: 20100301

REACTIONS (1)
  - ANGIOEDEMA [None]
